FAERS Safety Report 18115854 (Version 1)
Quarter: 2020Q3

REPORT INFORMATION
  Report Type: Spontaneous
  Country: DE (occurrence: DE)
  Receive Date: 20200805
  Receipt Date: 20200805
  Transmission Date: 20201103
  Serious: Yes (Hospitalization)
  Sender: FDA-Public Use
  Company Number: DE-BAUSCH-BL-2020-021826

PATIENT
  Age: 62 Year
  Sex: Male

DRUGS (5)
  1. METFORMIN [Suspect]
     Active Substance: METFORMIN HYDROCHLORIDE
     Indication: PRODUCT USED FOR UNKNOWN INDICATION
     Dosage: MORNING, NIGHT
     Route: 065
  2. TRULICITY [Suspect]
     Active Substance: DULAGLUTIDE
     Route: 065
     Dates: start: 202001, end: 202006
  3. TRULICITY [Suspect]
     Active Substance: DULAGLUTIDE
     Route: 065
     Dates: start: 201908, end: 202001
  4. METFORMIN [Suspect]
     Active Substance: METFORMIN HYDROCHLORIDE
     Dosage: MORNING, NIGHT
     Route: 065
     Dates: start: 20191209
  5. TRULICITY [Suspect]
     Active Substance: DULAGLUTIDE
     Indication: TYPE 2 DIABETES MELLITUS
     Route: 065
     Dates: start: 201907

REACTIONS (3)
  - Constipation [Recovered/Resolved]
  - Abdominal pain upper [Recovered/Resolved]
  - Abdominal pain [Recovered/Resolved]

NARRATIVE: CASE EVENT DATE: 20191125
